FAERS Safety Report 8974944 (Version 2)
Quarter: 2012Q4

REPORT INFORMATION
  Report Type: 
  Country: US (occurrence: US)
  Receive Date: 20121219
  Receipt Date: 20121221
  Transmission Date: 20130627
  Serious: No
  Sender: FDA-Public Use
  Company Number: US-UCBSA-073299

PATIENT

DRUGS (1)
  1. VIMPAT [Suspect]

REACTIONS (2)
  - Chest pain [Unknown]
  - Dyspnoea [Unknown]
